FAERS Safety Report 10730305 (Version 1)
Quarter: 2015Q1

REPORT INFORMATION
  Report Type: Spontaneous
  Country: US (occurrence: None)
  Receive Date: 20150121
  Receipt Date: 20150121
  Transmission Date: 20150721
  Serious: No
  Sender: FDA-Public Use
  Company Number: None

PATIENT
  Age: 67 Year
  Sex: Female
  Weight: 58.06 kg

DRUGS (3)
  1. PREDNISOLONE ACETATE 1% [Suspect]
     Active Substance: PREDNISOLONE ACETATE
     Indication: POST PROCEDURAL COMPLICATION
     Dosage: ONE DROP, THREE TIMES DAILY, INTO THE EYE
     Dates: start: 20150114, end: 20150115
  2. PREDNISOLONE ACETATE 1% [Suspect]
     Active Substance: PREDNISOLONE ACETATE
     Indication: IRIDOTOMY
     Dosage: ONE DROP, THREE TIMES DAILY, INTO THE EYE
     Dates: start: 20150114, end: 20150115
  3. PREDNISOLONE ACETATE 1% [Suspect]
     Active Substance: PREDNISOLONE ACETATE
     Dosage: ONE DROP, THREE TIMES DAILY, INTO THE EYE
     Dates: start: 20150114, end: 20150115

REACTIONS (4)
  - Rash [None]
  - Therapy cessation [None]
  - Inappropriate schedule of drug administration [None]
  - Erythema [None]

NARRATIVE: CASE EVENT DATE: 20150114
